FAERS Safety Report 5995135-6 (Version None)
Quarter: 2008Q4

REPORT INFORMATION
  Report Type: 
  Country: None (occurrence: None)
  Receive Date: 20081212
  Receipt Date: 20081209
  Transmission Date: 20090506
  Serious: Yes (Hospitalization, Other)
  Sender: FDA-Public Use
  Company Number: PHEH2008US10279

PATIENT
  Sex: Male

DRUGS (11)
  1. GLEEVEC [Suspect]
     Indication: CHRONIC MYELOID LEUKAEMIA
     Dosage: 400 MG, QD
     Route: 048
     Dates: start: 20050201
  2. OXYIR [Concomitant]
  3. OXYCONTIN [Concomitant]
  4. CORGARD [Concomitant]
     Dosage: 40 MG, QD
  5. LIPITOR [Concomitant]
  6. SPIRIVA [Concomitant]
  7. MICARDIS [Concomitant]
     Dosage: 80 MG, QD
  8. AMLODIPINE [Concomitant]
  9. CLONAZEPAM [Concomitant]
  10. ALLOPURINOL [Concomitant]
     Dosage: 100 MG, QD
  11. ASPIRIN [Concomitant]
     Dosage: 81 MG, QD

REACTIONS (19)
  - ABDOMINAL DISTENSION [None]
  - ALANINE AMINOTRANSFERASE DECREASED [None]
  - BLOOD ALKALINE PHOSPHATASE INCREASED [None]
  - BLOOD CALCIUM DECREASED [None]
  - BLOOD CHLORIDE INCREASED [None]
  - BLOOD CREATININE INCREASED [None]
  - BLOOD GLUCOSE INCREASED [None]
  - BLOOD LACTATE DEHYDROGENASE INCREASED [None]
  - BLOOD UREA INCREASED [None]
  - CARDIAC FAILURE CONGESTIVE [None]
  - DIALYSIS [None]
  - DISEASE PROGRESSION [None]
  - DYSPNOEA EXERTIONAL [None]
  - EJECTION FRACTION DECREASED [None]
  - ELECTROCARDIOGRAM ABNORMAL [None]
  - MYOCARDIAL INFARCTION [None]
  - OEDEMA PERIPHERAL [None]
  - OXYGEN SATURATION DECREASED [None]
  - RENAL FAILURE [None]
